FAERS Safety Report 14338741 (Version 1)
Quarter: 2017Q4

REPORT INFORMATION
  Report Type: Spontaneous
  Country: US (occurrence: US)
  Receive Date: 20171229
  Receipt Date: 20171229
  Transmission Date: 20180321
  Serious: Yes (Other)
  Sender: FDA-Public Use
  Company Number: US-BAUSCH-BL-2017-035175

PATIENT
  Age: 90 Year
  Sex: Male
  Weight: 63.56 kg

DRUGS (1)
  1. MINITRAN [Suspect]
     Active Substance: NITROGLYCERIN
     Indication: ANGINA UNSTABLE
     Dosage: PATCH
     Route: 061
     Dates: start: 201712

REACTIONS (3)
  - Pain [Not Recovered/Not Resolved]
  - Angina pectoris [Not Recovered/Not Resolved]
  - Application site pain [None]

NARRATIVE: CASE EVENT DATE: 201712
